FAERS Safety Report 16738867 (Version 1)
Quarter: 2019Q3

REPORT INFORMATION
  Report Type: Spontaneous
  Country: US (occurrence: US)
  Receive Date: 20190826
  Receipt Date: 20190826
  Transmission Date: 20191005
  Serious: No
  Sender: FDA-Public Use
  Company Number: US-CELGENEUS-USA-20190802210

PATIENT
  Age: 59 Year
  Sex: Female

DRUGS (3)
  1. OTEZLA [Suspect]
     Active Substance: APREMILAST
     Indication: PSORIASIS
     Dosage: 10/20/30 MG (STARTER PACK)
     Route: 048
     Dates: start: 201908
  2. OTEZLA [Suspect]
     Active Substance: APREMILAST
     Indication: PSORIATIC ARTHROPATHY
     Dosage: 60 MILLIGRAM
     Route: 048
     Dates: start: 20190722
  3. CELEBREX [Concomitant]
     Active Substance: CELECOXIB
     Indication: PRODUCT USED FOR UNKNOWN INDICATION
     Route: 065

REACTIONS (10)
  - Headache [Not Recovered/Not Resolved]
  - Blood iron decreased [Unknown]
  - Weight decreased [Unknown]
  - Joint stiffness [Unknown]
  - Arthropathy [Unknown]
  - Paraesthesia [Recovered/Resolved]
  - Chest pain [Unknown]
  - Blood creatinine decreased [Unknown]
  - Feeling abnormal [Unknown]
  - Blood urea decreased [Unknown]

NARRATIVE: CASE EVENT DATE: 2019
